FAERS Safety Report 24020384 (Version 1)
Quarter: 2024Q2

REPORT INFORMATION
  Report Type: Spontaneous
  Country: US (occurrence: US)
  Receive Date: 20240627
  Receipt Date: 20240627
  Transmission Date: 20240716
  Serious: Yes (Other)
  Sender: FDA-Public Use
  Company Number: US-NOVOPROD-1243027

PATIENT
  Age: 54 Year
  Sex: Male

DRUGS (1)
  1. OZEMPIC [Suspect]
     Active Substance: SEMAGLUTIDE
     Indication: Type 2 diabetes mellitus
     Dosage: 0.5 MG, QW
     Route: 058
     Dates: start: 202308

REACTIONS (5)
  - Ureteric stenosis [Recovering/Resolving]
  - Renal stone removal [Recovering/Resolving]
  - Renal stone removal [Recovering/Resolving]
  - Ureteral disorder [Recovering/Resolving]
  - Renal stone removal [Recovering/Resolving]

NARRATIVE: CASE EVENT DATE: 20231201
